FAERS Safety Report 6048127-5 (Version None)
Quarter: 2009Q1

REPORT INFORMATION
  Report Type: 
  Country: None (occurrence: None)
  Receive Date: 20090123
  Receipt Date: 20090115
  Transmission Date: 20090719
  Serious: Yes (Hospitalization)
  Sender: FDA-Public Use
  Company Number: DE-PFIZER INC-2008100935

PATIENT

DRUGS (6)
  1. SUNITINIB MALATE [Suspect]
     Indication: BREAST CANCER
     Dosage: 37.5 MG, 1X/DAY
     Route: 048
     Dates: start: 20081111, end: 20081121
  2. DOCETAXEL [Suspect]
     Indication: BREAST CANCER
     Dosage: 60 MG/M2, EVERY 3 WEEKS
     Route: 042
     Dates: start: 20080205, end: 20080528
  3. PRAVASTATIN SODIUM [Concomitant]
     Route: 048
  4. LOSARTAN POTASSIUM [Concomitant]
     Route: 048
  5. ALPHAGAN [Concomitant]
     Route: 048
  6. LATANOPROST [Concomitant]
     Route: 048

REACTIONS (4)
  - CONVULSION [None]
  - CYSTITIS HAEMORRHAGIC [None]
  - GENERAL PHYSICAL HEALTH DETERIORATION [None]
  - SOMNOLENCE [None]
